FAERS Safety Report 5114563-4 (Version None)
Quarter: 2006Q3

REPORT INFORMATION
  Report Type: 
  Country: None (occurrence: None)
  Receive Date: 20060921
  Receipt Date: 20060908
  Transmission Date: 20061208
  Serious: Yes (Disabling)
  Sender: FDA-Public Use
  Company Number: 060818-0000770

PATIENT
  Age: 16 Year
  Sex: Male

DRUGS (9)
  1. ELSPAR [Suspect]
     Indication: ACUTE LYMPHOCYTIC LEUKAEMIA
     Dosage: IV
     Route: 042
  2. DAUNORUBICIN HCL [Concomitant]
  3. VINCRISTINE [Concomitant]
  4. PREDNISONE [Concomitant]
  5. CYCLOPHOSPHAMIDE [Concomitant]
  6. METHOTREXATE [Concomitant]
  7. CYTARABINE [Concomitant]
  8. HYDROCORTISONE [Concomitant]
  9. MERCAPTOPURINE [Concomitant]

REACTIONS (8)
  - CEREBRAL HAEMATOMA [None]
  - COAGULOPATHY [None]
  - CONSTIPATION [None]
  - HEMIPARESIS [None]
  - MYELOPATHY [None]
  - NEUTROPENIA [None]
  - PARAPLEGIA [None]
  - URINARY INCONTINENCE [None]
